FAERS Safety Report 12499373 (Version 1)
Quarter: 2016Q2

REPORT INFORMATION
  Report Type: Report from Study
  Country: GB (occurrence: GB)
  Receive Date: 20160627
  Receipt Date: 20160627
  Transmission Date: 20160815
  Serious: Yes (Hospitalization, Other)
  Sender: FDA-Public Use
  Company Number: GB-BAXALTA-2016BLT001590

PATIENT
  Sex: Male
  Weight: 75 kg

DRUGS (8)
  1. ONCASPAR [Suspect]
     Active Substance: PEGASPARGASE
     Indication: ACUTE LYMPHOCYTIC LEUKAEMIA
     Dosage: 1875 IU, DAYS 4 AND 18
     Route: 042
     Dates: start: 20151206, end: 20151220
  2. DAUNORUBICIN [Concomitant]
     Active Substance: DAUNORUBICIN
     Indication: ACUTE LYMPHOCYTIC LEUKAEMIA
     Dosage: 55 MG, DAYS 1, 8, 15, AND 22
     Route: 042
     Dates: start: 20151203, end: 20151224
  3. DEXAMETHASONE. [Concomitant]
     Active Substance: DEXAMETHASONE
     Indication: STEROID THERAPY
     Dosage: 18 MG, DAYS 1, 2, 3, 4, 8, 9, 10, 11, 15, 16, 17, 18
     Route: 048
     Dates: start: 20151203, end: 20151220
  4. VINCRISTINE [Concomitant]
     Active Substance: VINCRISTINE
     Indication: ACUTE LYMPHOCYTIC LEUKAEMIA
     Dosage: 2 MG, DAYS 1, 8, 15, AND 22
     Route: 042
     Dates: start: 20151203, end: 20151224
  5. AMPHOTERICIN B, LIPOSOME [Concomitant]
     Active Substance: AMPHOTERICIN B
     Indication: ANTIFUNGAL TREATMENT
     Dosage: 525 MG, ONCE
     Route: 037
     Dates: start: 20151214, end: 20151214
  6. RITUXIMAB [Suspect]
     Active Substance: RITUXIMAB
     Indication: ACUTE LYMPHOCYTIC LEUKAEMIA
     Dosage: 700 MG, DAYS 3, 10, 17, AND 27
     Route: 042
     Dates: start: 20151205, end: 20151229
  7. DEXAMETHASONE. [Concomitant]
     Active Substance: DEXAMETHASONE
     Indication: ACUTE LYMPHOCYTIC LEUKAEMIA
     Dosage: 18 MG, 1X A DAY (PRE-PHASE)
     Route: 048
     Dates: start: 201511, end: 201512
  8. METHOTREXATE [Concomitant]
     Active Substance: METHOTREXATE
     Indication: ACUTE LYMPHOCYTIC LEUKAEMIA
     Dosage: 12.5 MG, DAY 14
     Route: 037
     Dates: start: 20151216, end: 20151216

REACTIONS (4)
  - Blood alkaline phosphatase increased [Recovered/Resolved]
  - Blood bilirubin increased [Recovered/Resolved]
  - Alanine aminotransferase increased [Recovered/Resolved]
  - Infection [Recovered/Resolved]

NARRATIVE: CASE EVENT DATE: 20151225
